FAERS Safety Report 18637620 (Version 1)
Quarter: 2020Q4

REPORT INFORMATION
  Report Type: Spontaneous
  Country: FR (occurrence: FR)
  Receive Date: 20201218
  Receipt Date: 20201218
  Transmission Date: 20210114
  Serious: Yes (Death, Other)
  Sender: FDA-Public Use
  Company Number: FR-009507513-2012FRA005864

PATIENT
  Age: 52 Year
  Sex: Male

DRUGS (3)
  1. INTERFERON ALFA-2B [Suspect]
     Active Substance: INTERFERON ALFA-2B
     Dosage: UNK
     Dates: start: 20120306, end: 20120612
  2. RIBAVIRIN. [Suspect]
     Active Substance: RIBAVIRIN
     Dosage: UNK
     Dates: start: 20120306, end: 20120612
  3. INCIVO [Concomitant]
     Active Substance: TELAPREVIR
     Dosage: UNK
     Dates: start: 20120306, end: 20120612

REACTIONS (1)
  - Death [Fatal]

NARRATIVE: CASE EVENT DATE: 20140813
